FAERS Safety Report 15706194 (Version 2)
Quarter: 2018Q4

REPORT INFORMATION
  Report Type: Spontaneous
  Country: ZA (occurrence: ZA)
  Receive Date: 20181210
  Receipt Date: 20181227
  Transmission Date: 20190205
  Serious: Yes (Other)
  Sender: FDA-Public Use
  Company Number: ZA-JNJFOC-20181209378

PATIENT
  Sex: Male

DRUGS (4)
  1. XARELTO [Suspect]
     Active Substance: RIVAROXABAN
     Indication: PULMONARY MICROEMBOLI
     Route: 048
     Dates: start: 201811
  2. XARELTO [Suspect]
     Active Substance: RIVAROXABAN
     Indication: INTRACARDIAC THROMBUS
     Route: 048
     Dates: start: 201811
  3. XARELTO [Suspect]
     Active Substance: RIVAROXABAN
     Indication: PULMONARY MICROEMBOLI
     Route: 048
     Dates: start: 2018
  4. XARELTO [Suspect]
     Active Substance: RIVAROXABAN
     Indication: INTRACARDIAC THROMBUS
     Route: 048
     Dates: start: 2018

REACTIONS (3)
  - Product prescribing issue [Unknown]
  - Pain [Not Recovered/Not Resolved]
  - Neuralgia [Not Recovered/Not Resolved]

NARRATIVE: CASE EVENT DATE: 2018
